FAERS Safety Report 9664416 (Version 1)
Quarter: 2013Q4

REPORT INFORMATION
  Report Type: Spontaneous
  Country: US (occurrence: US)
  Receive Date: 20131101
  Receipt Date: 20131101
  Transmission Date: 20140711
  Serious: No
  Sender: FDA-Public Use
  Company Number: US-TEVA-442010USA

PATIENT
  Age: 18 Year
  Sex: Female
  Weight: 61.29 kg

DRUGS (4)
  1. NUVIGIL [Suspect]
     Indication: DEPRESSED LEVEL OF CONSCIOUSNESS
  2. TOPIRAMATE [Concomitant]
  3. BUPROPION [Concomitant]
  4. BIRTH CONTROL PILLS [Concomitant]

REACTIONS (3)
  - Paraesthesia [Not Recovered/Not Resolved]
  - Eye colour change [Unknown]
  - Off label use [Unknown]
